FAERS Safety Report 18126220 (Version 2)
Quarter: 2025Q2

REPORT INFORMATION
  Report Type: Spontaneous
  Country: IT (occurrence: IT)
  Receive Date: 20200808
  Receipt Date: 20250621
  Transmission Date: 20250717
  Serious: Yes (Other)
  Sender: AUROBINDO
  Company Number: IT-MLMSERVICE-20200724-2400769-1

PATIENT
  Age: 60 Year
  Sex: Female

DRUGS (6)
  1. TOPIRAMATE [Suspect]
     Active Substance: TOPIRAMATE
     Indication: Cluster headache
     Dosage: UNK UNK, TWO TIMES A DAY (UP TO (DOSE OF 100 MG)
     Route: 065
  2. TOPIRAMATE [Suspect]
     Active Substance: TOPIRAMATE
     Dosage: 100 MILLIGRAM, TWO TIMES A DAY
     Route: 065
  3. SUMATRIPTAN [Suspect]
     Active Substance: SUMATRIPTAN
     Indication: Product used for unknown indication
     Route: 065
  4. LITHIUM [Suspect]
     Active Substance: LITHIUM
     Indication: Product used for unknown indication
     Dosage: 300 MILLIGRAM, 3 TIMES A DAY
     Route: 065
  5. VERAPAMIL [Suspect]
     Active Substance: VERAPAMIL HYDROCHLORIDE
     Indication: Product used for unknown indication
     Dosage: 240 MILLIGRAM, 3 TIMES A DAY
     Route: 065
  6. ERENUMAB [Concomitant]
     Active Substance: ERENUMAB
     Indication: Migraine
     Route: 065
     Dates: start: 201908

REACTIONS (5)
  - Hydronephrosis [Unknown]
  - Nephrolithiasis [Unknown]
  - Acute kidney injury [Unknown]
  - Renal colic [Unknown]
  - Drug ineffective [Unknown]
